FAERS Safety Report 8030081-8 (Version None)
Quarter: 2012Q1

REPORT INFORMATION
  Report Type: 
  Country: None (occurrence: None)
  Receive Date: 20120106
  Receipt Date: 20120106
  Transmission Date: 20120608
  Serious: Yes (Other)
  Sender: FDA-Public Use
  Company Number: None

PATIENT
  Age: 31 Year
  Sex: Female
  Weight: 63.5036 kg

DRUGS (1)
  1. CHORIONIC GONADOTROPIN [Suspect]
     Indication: WEIGHT DECREASED
     Dosage: 4 PELLETS 3 TIMES A DAY SUBLINGUAL
     Route: 060
     Dates: start: 20111110, end: 20111130

REACTIONS (6)
  - SYNCOPE [None]
  - NAUSEA [None]
  - DIARRHOEA [None]
  - VAGINAL HAEMORRHAGE [None]
  - HEADACHE [None]
  - VOMITING [None]
